FAERS Safety Report 19608916 (Version 9)
Quarter: 2022Q1

REPORT INFORMATION
  Report Type: Report from Study
  Country: CO (occurrence: CO)
  Receive Date: 20210726
  Receipt Date: 20220114
  Transmission Date: 20220424
  Serious: Yes (Hospitalization)
  Sender: FDA-Public Use
  Company Number: NVSC2021CO163782

PATIENT
  Age: 35 Year
  Sex: Female
  Weight: 73 kg

DRUGS (5)
  1. ELTROMBOPAG OLAMINE [Suspect]
     Active Substance: ELTROMBOPAG OLAMINE
     Indication: Immune thrombocytopenia
     Dosage: 75 MG, QD (AT NIGHT)
     Route: 048
     Dates: start: 202107, end: 20210817
  2. ELTROMBOPAG OLAMINE [Suspect]
     Active Substance: ELTROMBOPAG OLAMINE
     Dosage: 50 MG, QD (2 TABLETS OF 25 MG AT MIDDAY)
     Route: 048
     Dates: start: 20210817
  3. ELTROMBOPAG OLAMINE [Suspect]
     Active Substance: ELTROMBOPAG OLAMINE
     Dosage: 75 MG, QD
     Route: 048
     Dates: end: 202110
  4. ELTROMBOPAG OLAMINE [Suspect]
     Active Substance: ELTROMBOPAG OLAMINE
     Dosage: 50 MG, QD
     Route: 048
     Dates: start: 202110
  5. ELTROMBOPAG OLAMINE [Suspect]
     Active Substance: ELTROMBOPAG OLAMINE
     Dosage: UNK
     Route: 065

REACTIONS (21)
  - Paralysis [Unknown]
  - Haematoma [Unknown]
  - Petechiae [Unknown]
  - Contusion [Unknown]
  - Platelet count decreased [Unknown]
  - Depressed mood [Unknown]
  - Vaginal haemorrhage [Unknown]
  - Malaise [Unknown]
  - Drug intolerance [Unknown]
  - Myalgia [Unknown]
  - Pain [Unknown]
  - Headache [Unknown]
  - Rash macular [Unknown]
  - Fatigue [Unknown]
  - Asthenia [Unknown]
  - Immune system disorder [Unknown]
  - Mobility decreased [Unknown]
  - Pain of skin [Unknown]
  - Bone pain [Unknown]
  - Off label use [Unknown]
  - Product availability issue [Unknown]

NARRATIVE: CASE EVENT DATE: 20211001
